FAERS Safety Report 12808985 (Version 1)
Quarter: 2016Q4

REPORT INFORMATION
  Report Type: Spontaneous
  Country: US (occurrence: US)
  Receive Date: 20161004
  Receipt Date: 20161004
  Transmission Date: 20170207
  Serious: Yes (Other)
  Sender: FDA-Public Use
  Company Number: US-TEVA-697849USA

PATIENT
  Sex: Female

DRUGS (1)
  1. ACETAMINOPHEN W/HYDROCODONE [Suspect]
     Active Substance: ACETAMINOPHEN\HYDROCODONE
     Indication: PAIN
     Dosage: 7.5 MG/325 MG
     Route: 065

REACTIONS (13)
  - Abasia [Unknown]
  - Sciatica [Unknown]
  - Intervertebral disc protrusion [Unknown]
  - Drug ineffective [Unknown]
  - Drug withdrawal syndrome [Unknown]
  - Fibromyalgia [Unknown]
  - Malaise [Unknown]
  - Dysstasia [Unknown]
  - Anal incontinence [Unknown]
  - Product substitution issue [Unknown]
  - Gastrointestinal disorder [Unknown]
  - Pain [Unknown]
  - Irritable bowel syndrome [Unknown]
